FAERS Safety Report 5047417-2 (Version None)
Quarter: 2006Q3

REPORT INFORMATION
  Report Type: 
  Country: None (occurrence: None)
  Receive Date: 20060711
  Receipt Date: 20060630
  Transmission Date: 20061208
  Serious: Yes (Hospitalization, Other)
  Sender: FDA-Public Use
  Company Number: PHNU2006SI02419

PATIENT
  Age: 31 Year
  Sex: Male
  Weight: 70 kg

DRUGS (5)
  1. LEPONEX [Suspect]
     Indication: PSYCHOTIC DISORDER
     Dosage: UP TO 300 MG/DAY
     Route: 048
     Dates: end: 20060629
  2. LEPONEX [Suspect]
     Dosage: UP TO 325 MG/DAY
     Route: 048
     Dates: start: 20060630
  3. TEGRETOL [Suspect]
     Indication: PETIT MAL EPILEPSY
     Dosage: 200 MG, TID
     Route: 048
     Dates: start: 20060501
  4. CLOPIXOL [Concomitant]
     Dosage: 1 DF, ONCE/SINGLE
     Route: 065
     Dates: start: 20060624, end: 20060624
  5. EPILEPSIN [Concomitant]
     Route: 065

REACTIONS (7)
  - ABNORMAL BEHAVIOUR [None]
  - DRUG INEFFECTIVE [None]
  - DRUG INTERACTION [None]
  - PERSONALITY CHANGE [None]
  - PETIT MAL EPILEPSY [None]
  - PSYCHOTIC DISORDER [None]
  - SUICIDE ATTEMPT [None]
